FAERS Safety Report 25682797 (Version 3)
Quarter: 2025Q4

REPORT INFORMATION
  Report Type: Spontaneous
  Country: JP (occurrence: JP)
  Receive Date: 20250814
  Receipt Date: 20251004
  Transmission Date: 20260118
  Serious: Yes (Death, Other)
  Sender: AMGEN
  Company Number: JP-AMGEN-JPNSP2025158037

PATIENT
  Age: 72 Year
  Sex: Male
  Weight: 49 kg

DRUGS (1)
  1. IMDELLTRA [Suspect]
     Active Substance: TARLATAMAB-DLLE
     Indication: Small cell lung cancer
     Dosage: 1 MILLIGRAM, ONE TIME DOSE (ONCE), DRIP INFUSION
     Route: 040
     Dates: start: 20250729, end: 20250729

REACTIONS (2)
  - Myocardial infarction [Fatal]
  - Cytokine release syndrome [Recovered/Resolved]

NARRATIVE: CASE EVENT DATE: 20250731
